FAERS Safety Report 9188063 (Version 1)
Quarter: 2013Q1

REPORT INFORMATION
  Report Type: Spontaneous
  Country: JP (occurrence: JP)
  Receive Date: 20130325
  Receipt Date: 20130325
  Transmission Date: 20140127
  Serious: Yes (Other)
  Sender: FDA-Public Use
  Company Number: JP-GLAXOSMITHKLINE-B0871147A

PATIENT
  Age: 66 Year
  Sex: Female
  Weight: 60 kg

DRUGS (4)
  1. ARIXTRA [Suspect]
     Indication: THROMBOSIS PROPHYLAXIS
     Dosage: 1.5MG PER DAY
     Route: 058
     Dates: start: 20130214, end: 20130220
  2. AMLODIPINE [Concomitant]
     Dosage: 5MG PER DAY
     Route: 048
  3. ATORVASTATIN [Concomitant]
     Dosage: 5MG PER DAY
     Route: 048
  4. NSAIDS [Concomitant]

REACTIONS (3)
  - Haemorrhage subcutaneous [Recovered/Resolved]
  - Erythema [Recovering/Resolving]
  - Pruritus [Recovered/Resolved]
